FAERS Safety Report 4488203-1 (Version None)
Quarter: 2004Q4

REPORT INFORMATION
  Report Type: 
  Country: None (occurrence: None)
  Receive Date: 20041026
  Receipt Date: 20041013
  Transmission Date: 20050328
  Serious: Yes (Other)
  Sender: FDA-Public Use
  Company Number: A03200403379

PATIENT
  Age: 61 Year
  Sex: Female
  Weight: 66.6788 kg

DRUGS (4)
  1. ELOXATIN [Suspect]
     Indication: COLON CANCER
     Dosage: 140 MG Q2W- INTRAVENOUS NOS
     Route: 042
     Dates: start: 20040908, end: 20040908
  2. ELOXATIN [Suspect]
     Indication: METASTASES TO LIVER
     Dosage: 140 MG Q2W- INTRAVENOUS NOS
     Route: 042
     Dates: start: 20040908, end: 20040908
  3. FLUOROURACIL [Concomitant]
  4. LEUCOVORIN [Concomitant]

REACTIONS (2)
  - HEPATIC CIRRHOSIS [None]
  - PORTAL HYPERTENSION [None]
